FAERS Safety Report 10078496 (Version 1)
Quarter: 2014Q2

REPORT INFORMATION
  Report Type: Spontaneous
  Country: US (occurrence: None)
  Receive Date: 20140411
  Receipt Date: 20140411
  Transmission Date: 20141212
  Serious: Yes (Other)
  Sender: FDA-Public Use
  Company Number: 2012SA061623

PATIENT
  Age: 68 Year
  Sex: Female

DRUGS (1)
  1. UNISOM SLEEPGELS NIGHTTIME SLEEP-AID [Suspect]
     Indication: INSOMNIA
     Route: 048
     Dates: start: 2012, end: 2012

REACTIONS (3)
  - Hallucination [None]
  - Nightmare [None]
  - Drug ineffective [None]
